FAERS Safety Report 7529058-8 (Version None)
Quarter: 2011Q2

REPORT INFORMATION
  Report Type: 
  Country: None (occurrence: None)
  Receive Date: 20110607
  Receipt Date: 20110525
  Transmission Date: 20111010
  Serious: Yes (Death, Hospitalization)
  Sender: FDA-Public Use
  Company Number: FR-TEVA-284207ISR

PATIENT
  Sex: Male

DRUGS (29)
  1. FUROSEMIDE [Concomitant]
     Indication: CARDIOMYOPATHY
     Route: 042
     Dates: start: 20100202, end: 20100202
  2. FUROSEMIDE [Concomitant]
     Indication: PROPHYLAXIS
  3. FLUINDIONE [Concomitant]
     Indication: THROMBOSIS
     Dosage: .5 DOSAGE FORMS;
     Route: 048
     Dates: end: 20100225
  4. COLCHICINE [Concomitant]
     Route: 048
     Dates: start: 20100127, end: 20100128
  5. RASBURICASE [Concomitant]
     Indication: HYPERURICAEMIA
     Route: 042
     Dates: start: 20100126, end: 20100126
  6. FLUINDIONE [Concomitant]
     Route: 048
     Dates: start: 20100129, end: 20100225
  7. LEVOTHYROXINE SODIUM [Concomitant]
     Indication: THYROIDECTOMY
  8. ACETAMINOPHEN [Concomitant]
     Indication: BONE PAIN
     Dosage: PRN
     Route: 048
     Dates: start: 20100131, end: 20100225
  9. FLUINDIONE [Concomitant]
     Indication: CARDIOMYOPATHY
     Route: 048
     Dates: start: 20090101, end: 20100126
  10. ACETORPHAN [Concomitant]
     Indication: PROPHYLAXIS AGAINST DIARRHOEA
     Route: 048
     Dates: start: 20100127, end: 20100129
  11. LENALIDOMIDE [Suspect]
     Route: 048
     Dates: start: 20091230
  12. FLUINDIONE [Concomitant]
     Dosage: EVEN DAYS
     Route: 048
     Dates: start: 20100126, end: 20100128
  13. COLCHICINE [Concomitant]
     Indication: GOUT
     Dosage: 1 MILLIGRAM;
     Route: 048
     Dates: end: 20100225
  14. COLCHICINE [Concomitant]
     Route: 048
     Dates: start: 20100126, end: 20100126
  15. ALFUZOSIN HYDROCHLORIDE [Concomitant]
     Indication: BENIGN PROSTATIC HYPERPLASIA
     Route: 048
     Dates: end: 20100225
  16. ZOLEDRONIC ACID [Concomitant]
     Indication: BONE PAIN
     Route: 042
     Dates: start: 20100126, end: 20100126
  17. TRAMADOL HCL [Concomitant]
     Indication: ARTHRALGIA
     Dosage: PRN
     Route: 048
     Dates: start: 20100126, end: 20100131
  18. DEXAMETHASONE [Suspect]
     Dates: start: 20091230
  19. BISOPROLOL FUMARATE [Concomitant]
     Indication: HYPERTENSION
     Dosage: 5 MILLIGRAM;
     Route: 048
     Dates: start: 19990101, end: 20100225
  20. AMOXICILLIN [Concomitant]
     Indication: PRODUCTIVE COUGH
     Route: 048
     Dates: start: 20100126, end: 20100203
  21. FUROSEMIDE [Concomitant]
     Indication: HYPERTENSION
     Dosage: 160 MILLIGRAM;
     Route: 048
     Dates: start: 20090901, end: 20100225
  22. FLUINDIONE [Concomitant]
     Dosage: ODD DAYS
     Route: 048
     Dates: start: 20100126, end: 20100128
  23. LENALIDOMIDE [Suspect]
     Indication: MULTIPLE MYELOMA
     Route: 048
     Dates: start: 20100203, end: 20100222
  24. BISOPROLOL FUMARATE [Concomitant]
     Indication: CARDIOMYOPATHY
  25. LEVOTHYROXINE SODIUM [Concomitant]
     Indication: HYPOTHYROIDISM
     Dosage: 112.5 MILLIGRAM;
     Route: 048
     Dates: start: 19990101, end: 20100225
  26. ALLOPURINOL [Concomitant]
     Indication: HYPERURICAEMIA
     Dosage: 300 MILLIGRAM;
     Route: 048
     Dates: end: 20100225
  27. LISINOPRIL [Concomitant]
     Indication: HYPERTENSION
     Route: 048
     Dates: start: 20090327, end: 20100126
  28. DEXAMETHASONE [Suspect]
     Indication: MULTIPLE MYELOMA
     Dates: start: 20100203, end: 20100217
  29. COLCHICINE [Concomitant]
     Route: 048
     Dates: start: 20100129, end: 20100225

REACTIONS (2)
  - LUNG INFECTION [None]
  - SEPSIS [None]
